FAERS Safety Report 9287681 (Version 3)
Quarter: 2015Q2

REPORT INFORMATION
  Report Type: Spontaneous
  Country: US (occurrence: US)
  Receive Date: 20130514
  Receipt Date: 20150525
  Transmission Date: 20150821
  Serious: Yes (Other)
  Sender: FDA-Public Use
  Company Number: US-JNJFOC-20130417641

PATIENT
  Age: 75 Year
  Sex: Female
  Weight: 44.45 kg

DRUGS (19)
  1. ZOFRAN [Concomitant]
     Active Substance: ONDANSETRON HYDROCHLORIDE
     Route: 042
     Dates: start: 201207
  2. LOMOTIL [Concomitant]
     Active Substance: ATROPINE SULFATE\DIPHENOXYLATE HYDROCHLORIDE
     Indication: DIARRHOEA
     Route: 048
  3. FLUOROURACIL. [Concomitant]
     Active Substance: FLUOROURACIL
     Route: 042
     Dates: start: 201207
  4. MULTIVITAMINS [Concomitant]
     Active Substance: VITAMINS
     Route: 065
  5. CREON [Concomitant]
     Active Substance: PANCRELIPASE AMYLASE\PANCRELIPASE LIPASE\PANCRELIPASE PROTEASE
     Route: 048
     Dates: start: 201207
  6. PANCRELIPASE. [Concomitant]
     Active Substance: PANCRELIPASE
     Indication: MALABSORPTION
     Route: 065
  7. VITAMIN D [Concomitant]
     Active Substance: CHOLECALCIFEROL
     Indication: VITAMIN D DEFICIENCY
     Route: 065
     Dates: start: 201207
  8. XARELTO [Suspect]
     Active Substance: RIVAROXABAN
     Indication: THROMBOSIS
     Route: 048
     Dates: start: 20130430
  9. TINCTURE OF OPIUM [Concomitant]
     Active Substance: OPIUM
     Indication: DIARRHOEA
     Dosage: 3/10TH OF A MG
     Route: 065
     Dates: start: 201207
  10. OCTREOTIDE [Concomitant]
     Active Substance: OCTREOTIDE
     Indication: NEOPLASM MALIGNANT
     Dosage: 150 MICROGRAM, MORNING AND EVENING
     Route: 065
     Dates: start: 201207
  11. XARELTO [Suspect]
     Active Substance: RIVAROXABAN
     Indication: METASTATIC NEOPLASM
     Route: 048
     Dates: start: 20130115, end: 20130429
  12. FERRITIN [Concomitant]
     Active Substance: FERRITIN
     Indication: BLOOD IRON DECREASED
     Route: 042
  13. XARELTO [Suspect]
     Active Substance: RIVAROXABAN
     Indication: METASTATIC NEOPLASM
     Route: 048
     Dates: start: 20130430
  14. XARELTO [Suspect]
     Active Substance: RIVAROXABAN
     Indication: THROMBOSIS
     Route: 048
     Dates: start: 20130115, end: 20130429
  15. DEXAMETHASONE. [Concomitant]
     Active Substance: DEXAMETHASONE
     Route: 042
     Dates: start: 201207
  16. PERIACTIN [Concomitant]
     Active Substance: CYPROHEPTADINE HYDROCHLORIDE
     Indication: NEOPLASM MALIGNANT
     Route: 065
  17. OCTREOTIDE [Concomitant]
     Active Substance: OCTREOTIDE
     Indication: NEOPLASM MALIGNANT
     Dosage: MORNING AND EVENING
     Route: 058
     Dates: start: 201207
  18. KLOR-CON [Concomitant]
     Active Substance: POTASSIUM CHLORIDE
     Route: 065
     Dates: start: 201207
  19. LEUKOVORIN [Concomitant]
     Active Substance: LEUCOVORIN SODIUM
     Route: 042
     Dates: start: 201207

REACTIONS (4)
  - Vitamin D deficiency [Unknown]
  - Epistaxis [Recovered/Resolved]
  - Haemoglobin decreased [Not Recovered/Not Resolved]
  - Off label use [Unknown]

NARRATIVE: CASE EVENT DATE: 201303
